FAERS Safety Report 24679158 (Version 1)
Quarter: 2024Q4

REPORT INFORMATION
  Report Type: Spontaneous
  Country: TW (occurrence: TW)
  Receive Date: 20241129
  Receipt Date: 20241129
  Transmission Date: 20250114
  Serious: Yes (Other)
  Sender: RANBAXY
  Company Number: TW-SUN PHARMACEUTICAL INDUSTRIES LTD-2024R1-481584

PATIENT
  Age: 67 Year
  Sex: Male

DRUGS (5)
  1. PAROXETINE [Interacting]
     Active Substance: PAROXETINE
     Indication: Depressed mood
     Dosage: 20 MILLIGRAM, DAILY
     Route: 065
  2. QUETIAPINE [Interacting]
     Active Substance: QUETIAPINE
     Indication: Agitation
     Dosage: 25 MILLIGRAM, BID AND ONCE BEFORE BED
     Route: 065
  3. QUETIAPINE [Interacting]
     Active Substance: QUETIAPINE
     Indication: Behaviour disorder
     Dosage: 175 MILLIGRAM, DAILY
     Route: 065
  4. RISPERIDONE [Interacting]
     Active Substance: RISPERIDONE
     Indication: Jealous delusion
     Dosage: 2 MILLIGRAM, DAILY
     Route: 065
  5. RISPERIDONE [Interacting]
     Active Substance: RISPERIDONE
     Dosage: 1 MILLIGRAM, DAILY
     Route: 065

REACTIONS (2)
  - Drug interaction [Unknown]
  - Serotonin syndrome [Recovering/Resolving]
